FAERS Safety Report 8573624-8 (Version None)
Quarter: 2012Q3

REPORT INFORMATION
  Report Type: 
  Country: None (occurrence: None)
  Receive Date: 20120806
  Receipt Date: 20120727
  Transmission Date: 20120928
  Serious: Yes (Hospitalization)
  Sender: FDA-Public Use
  Company Number: JP-VERTEX PHARMACEUTICALS INC.-AE-2012-010893

PATIENT
  Age: 66 Year
  Sex: Male

DRUGS (13)
  1. ALLOPURINOL [Suspect]
     Indication: HEPATITIS C
     Route: 048
     Dates: start: 20120604, end: 20120605
  2. TSUMARA RIKKUNSHITO EXTRACT GRANULES FOR ETHICAL USE [Concomitant]
     Route: 048
     Dates: end: 20120707
  3. TELAVIC (TELAPREVIR) [Suspect]
     Route: 048
     Dates: start: 20120619, end: 20120707
  4. TALION [Concomitant]
     Route: 048
     Dates: start: 20120713, end: 20120713
  5. VOLTAREN [Concomitant]
     Route: 054
  6. PEG-INTRON [Suspect]
     Indication: HEPATITIS C
     Route: 058
     Dates: start: 20120604, end: 20120702
  7. LANSOPRAZOLE [Concomitant]
     Route: 048
     Dates: end: 20120707
  8. TELAVIC (TELAPREVIR) [Suspect]
     Indication: HEPATITIS C
     Route: 048
     Dates: start: 20120604, end: 20120617
  9. TELAVIC (TELAPREVIR) [Suspect]
     Route: 048
     Dates: start: 20120618, end: 20120618
  10. REBETOL [Suspect]
     Indication: HEPATITIS C
     Route: 048
     Dates: start: 20120604, end: 20120707
  11. LIDOMEX [Concomitant]
     Route: 061
     Dates: start: 20120713, end: 20120713
  12. ALLOPURINOL [Suspect]
     Route: 048
     Dates: start: 20120606, end: 20120707
  13. JUVELA [Concomitant]
     Route: 061
     Dates: start: 20120713, end: 20120713

REACTIONS (2)
  - DRUG ERUPTION [None]
  - PANCREATITIS [None]
